FAERS Safety Report 9795588 (Version 4)
Quarter: 2016Q1

REPORT INFORMATION
  Report Type: Spontaneous
  Country: NO (occurrence: NO)
  Receive Date: 20140103
  Receipt Date: 20160308
  Transmission Date: 20160526
  Serious: Yes (Death, Other)
  Sender: FDA-Public Use
  Company Number: NO-BRISTOL-MYERS SQUIBB COMPANY-19940428

PATIENT
  Age: 18 Year
  Sex: Female

DRUGS (5)
  1. VINCRISTINE [Suspect]
     Active Substance: VINCRISTINE
     Indication: EWING^S SARCOMA
     Dosage: 6 MG/M2, UNK
     Route: 065
  2. IFOSFAMIDE. [Suspect]
     Active Substance: IFOSFAMIDE
     Indication: EWING^S SARCOMA
     Dosage: 27000 MG/M2, UNK
     Route: 065
  3. CYCLOPHOSPHAMIDE. [Suspect]
     Active Substance: CYCLOPHOSPHAMIDE
     Indication: EWING^S SARCOMA
     Dosage: 10400 MG/M2, UNK
     Route: 065
  4. DOXORUBICIN [Suspect]
     Active Substance: DOXORUBICIN
     Indication: EWING^S SARCOMA
     Dosage: 340 MG/M2, UNK
     Route: 042
  5. VEPESID [Suspect]
     Active Substance: ETOPOSIDE
     Indication: EWING^S SARCOMA
     Dosage: 1500 MG/M2, UNK
     Route: 065

REACTIONS (9)
  - Pulmonary toxicity [Fatal]
  - Malignant neoplasm progression [Unknown]
  - Acute respiratory distress syndrome [Fatal]
  - Therapeutic response decreased [Unknown]
  - Pleural effusion [Fatal]
  - Product use issue [Unknown]
  - Pneumonia [Fatal]
  - Ileus [Unknown]
  - Neutropenia [Unknown]
